FAERS Safety Report 17842920 (Version 2)
Quarter: 2022Q2

REPORT INFORMATION
  Report Type: Spontaneous
  Country: CA (occurrence: None)
  Receive Date: 20200530
  Receipt Date: 20220406
  Transmission Date: 20220720
  Serious: Yes (Hospitalization)
  Sender: FDA-Public Use
  Company Number: CA-ROCHE-2607802

PATIENT
  Age: 65 Year
  Sex: Male
  Weight: 94 kg

DRUGS (13)
  1. ESBRIET [Suspect]
     Active Substance: PIRFENIDONE
     Indication: Idiopathic pulmonary fibrosis
     Route: 048
  2. ESBRIET [Suspect]
     Active Substance: PIRFENIDONE
     Route: 048
  3. ESBRIET [Suspect]
     Active Substance: PIRFENIDONE
     Route: 048
  4. ACETAMINOPHEN\PSEUDOEPHEDRINE [Concomitant]
     Active Substance: ACETAMINOPHEN\PSEUDOEPHEDRINE
  5. DOXYLAMINE SUCCINATE [Concomitant]
     Active Substance: DOXYLAMINE SUCCINATE
  6. SUCCINATE SODIUM [Concomitant]
  7. METOPROLOL [Concomitant]
     Active Substance: METOPROLOL
  8. MUCOMYST [Concomitant]
     Active Substance: ACETYLCYSTEINE
  9. PANTOPRAZOLE MAGNESIUM [Concomitant]
     Active Substance: PANTOPRAZOLE MAGNESIUM
  10. ROSUVASTATIN [Concomitant]
     Active Substance: ROSUVASTATIN
  11. TELMISARTAN [Concomitant]
     Active Substance: TELMISARTAN
  12. PANTOPRAZOLE MAGNESIUM [Concomitant]
     Active Substance: PANTOPRAZOLE MAGNESIUM
  13. ASPIRIN [Concomitant]
     Active Substance: ASPIRIN

REACTIONS (7)
  - Arteriosclerosis coronary artery [Recovered/Resolved]
  - Dyspnoea exertional [Recovered/Resolved]
  - Lung diffusion test decreased [Recovered/Resolved]
  - Myocardial infarction [Recovered/Resolved]
  - Nasopharyngitis [Recovered/Resolved]
  - Pulmonary function test abnormal [Recovered/Resolved]
  - Walking distance test abnormal [Recovered/Resolved]
